FAERS Safety Report 17599024 (Version 1)
Quarter: 2020Q1

REPORT INFORMATION
  Report Type: Spontaneous
  Country: US (occurrence: US)
  Receive Date: 20200330
  Receipt Date: 20200330
  Transmission Date: 20200409
  Serious: No
  Sender: FDA-Public Use
  Company Number: None

PATIENT
  Age: 85 Year
  Sex: Female
  Weight: 65.5 kg

DRUGS (4)
  1. NORMAL SALINE 1 L [Concomitant]
     Dates: start: 20200305, end: 20200305
  2. ERTAPENEM. [Suspect]
     Active Substance: ERTAPENEM SODIUM
     Indication: URINARY TRACT INFECTION
     Route: 042
     Dates: start: 20200305, end: 20200305
  3. ACETAMINOPHEN 1000MG [Concomitant]
     Dates: start: 20200305, end: 20200305
  4. HUMALOG [Concomitant]
     Active Substance: INSULIN LISPRO
     Dates: start: 20200305, end: 20200305

REACTIONS (2)
  - Rash [None]
  - Urticaria [None]

NARRATIVE: CASE EVENT DATE: 20200305
